FAERS Safety Report 7325146-X (Version None)
Quarter: 2011Q1

REPORT INFORMATION
  Report Type: 
  Country: None (occurrence: None)
  Receive Date: 20110302
  Receipt Date: 20110217
  Transmission Date: 20110831
  Serious: Yes (Hospitalization)
  Sender: FDA-Public Use
  Company Number: FR-ELI_LILLY_AND_COMPANY-FR201012005993

PATIENT
  Sex: Male

DRUGS (8)
  1. ARICEPT [Concomitant]
  2. INEGY [Concomitant]
  3. PREVISCAN [Concomitant]
  4. LASIX [Concomitant]
     Indication: ARRHYTHMIA
     Dosage: 40 D/F, UNK
  5. CORDARONE [Concomitant]
     Indication: ARRHYTHMIA
     Dosage: 0.5 D/F, DAILY (1/D)
  6. FORTEO [Suspect]
     Indication: OSTEOPOROSIS
     Dosage: 20 UG, DAILY (1/D)
     Route: 058
     Dates: start: 20100919
  7. UVEDOSE [Concomitant]
     Indication: OSTEOPOROSIS
     Dosage: 1 D/F, EVERY OTHER MONTH
     Route: 048
  8. KENZEN [Concomitant]
     Indication: ARRHYTHMIA

REACTIONS (1)
  - SPINAL FRACTURE [None]
